FAERS Safety Report 7774704-7 (Version None)
Quarter: 2011Q3

REPORT INFORMATION
  Report Type: 
  Country: None (occurrence: None)
  Receive Date: 20110923
  Receipt Date: 20110906
  Transmission Date: 20111222
  Serious: Yes (Other)
  Sender: FDA-Public Use
  Company Number: US-ROCHE-804099

PATIENT
  Age: 81 Year
  Sex: Male

DRUGS (2)
  1. BEVACIZUMAB [Suspect]
     Route: 065
  2. RANIBIZUMAB [Suspect]
     Route: 065

REACTIONS (2)
  - MACULAR DEGENERATION [None]
  - BLINDNESS UNILATERAL [None]
